FAERS Safety Report 5412637-1 (Version None)
Quarter: 2007Q3

REPORT INFORMATION
  Report Type: 
  Country: None (occurrence: None)
  Receive Date: 20070813
  Receipt Date: 20070808
  Transmission Date: 20080115
  Serious: Yes (Hospitalization)
  Sender: FDA-Public Use
  Company Number: US-ASTRAZENECA-2007UW19149

PATIENT
  Age: 53 Year
  Sex: Female
  Weight: 68 kg

DRUGS (13)
  1. SEROQUEL [Suspect]
     Indication: SLEEP DISORDER
     Route: 048
     Dates: start: 20050101, end: 20070804
  2. SEROQUEL [Suspect]
     Indication: ANXIETY
     Route: 048
     Dates: start: 20050101, end: 20070804
  3. LITHIUM CARBONATE [Suspect]
     Dates: end: 20070804
  4. LITHIUM CARBONATE [Suspect]
  5. WELLBUTRIN [Concomitant]
  6. ZOLOFT [Concomitant]
  7. KLONOPIN [Concomitant]
  8. NEXIUM [Concomitant]
  9. IMITREX [Concomitant]
  10. ATENOLOL [Concomitant]
  11. FUROSEMIDE [Concomitant]
  12. CLINDAMYCIN HCL [Concomitant]
  13. QUINAPRIL HCL [Concomitant]

REACTIONS (5)
  - ANXIETY [None]
  - INSOMNIA [None]
  - LOSS OF CONSCIOUSNESS [None]
  - OVERDOSE [None]
  - PANIC ATTACK [None]
